FAERS Safety Report 7225918 (Version 3)
Quarter: 2012Q4

REPORT INFORMATION
  Report Type: 
  Country: US (occurrence: US)
  Receive Date: 20091222
  Receipt Date: 20120925
  Transmission Date: 20130627
  Serious: Yes (Hospitalization, Other)
  Sender: FDA-Public Use
  Company Number: US-BAYER-200943079NA

PATIENT
  Age: 37 Year
  Sex: Female
  Weight: 74 kg

DRUGS (17)
  1. YASMIN [Suspect]
     Indication: ACNE
     Dosage: PHARMACY RECORDS: YASMIN 28 DISPENSED 21 DEC 2005.
     Dates: start: 20051109, end: 20051228
  2. YASMIN [Suspect]
     Indication: MENOMETRORRHAGIA
  3. YASMIN [Suspect]
     Indication: PREMENSTRUAL SYNDROME
  4. HISTINEX HC [Concomitant]
  5. ALBUTEROL [Concomitant]
     Route: 055
  6. IBUPROFEN [Concomitant]
  7. ASPIRIN [Concomitant]
  8. ROCEPHIN [Concomitant]
  9. OPIOIDS [Concomitant]
  10. COUGH AND COLD PREPARATIONS [Concomitant]
  11. PROVENTIL [Concomitant]
  12. LOVENOX [Concomitant]
     Dosage: 1MG/KG
     Route: 058
  13. HEPARIN [Concomitant]
     Dosage: HEPARIN DRIP
  14. COUMADIN [Concomitant]
  15. XANAX [Concomitant]
  16. LEXAPRO [Concomitant]
  17. HOMEOPATIC PREPARATION [Concomitant]

REACTIONS (16)
  - Pulmonary embolism [Recovering/Resolving]
  - Pulmonary infarction [Recovering/Resolving]
  - Musculoskeletal chest pain [Recovering/Resolving]
  - Haemoptysis [Recovering/Resolving]
  - Choking sensation [Recovering/Resolving]
  - Bronchitis [Recovering/Resolving]
  - Cough [Recovering/Resolving]
  - Pyrexia [Recovering/Resolving]
  - Night sweats [Recovering/Resolving]
  - Dyspnoea [Recovering/Resolving]
  - Diaphragmalgia [Recovering/Resolving]
  - Anxiety [Unknown]
  - Panic attack [Unknown]
  - Diarrhoea [Unknown]
  - Nausea [Unknown]
  - Vomiting [Unknown]
